FAERS Safety Report 6414603-6 (Version None)
Quarter: 2009Q4

REPORT INFORMATION
  Report Type: 
  Country: None (occurrence: None)
  Receive Date: 20091026
  Receipt Date: 20091026
  Transmission Date: 20100525
  Serious: No
  Sender: FDA-Public Use
  Company Number: US-B.I. PHARMACEUTICALS,INC./RIDGEFIELD-2009-BP-12392BP

PATIENT
  Sex: Female

DRUGS (6)
  1. ZANTAC 150 [Suspect]
     Indication: DYSPEPSIA
     Dosage: 300 MG
     Route: 048
     Dates: start: 20090801
  2. ZANTAC 150 [Suspect]
     Indication: GASTROOESOPHAGEAL REFLUX DISEASE
  3. STALEZO [Concomitant]
     Indication: PARKINSON'S DISEASE
  4. REQUIP [Concomitant]
     Indication: PARKINSON'S DISEASE
  5. HYDROCHLOROTHIAZIDE [Concomitant]
     Indication: HYPERTENSION
  6. METOPROLOL [Concomitant]
     Indication: HYPERTENSION

REACTIONS (1)
  - ABDOMINAL DISTENSION [None]
